FAERS Safety Report 5456617-9 (Version None)
Quarter: 2007Q3

REPORT INFORMATION
  Report Type: 
  Country: None (occurrence: None)
  Receive Date: 20070917
  Receipt Date: 20070917
  Transmission Date: 20080115
  Serious: Yes (Hospitalization)
  Sender: FDA-Public Use
  Company Number: None

PATIENT
  Sex: Female
  Weight: 58.5 kg

DRUGS (16)
  1. DOXIL [Suspect]
     Dosage: 62 MG
  2. CYCLOPHOSPHAMIDE [Suspect]
     Dosage: 1155 MG
  3. VINCRISTINE SULFATE [Suspect]
     Dosage: 2 MG
  4. HEPARIN LOCK-FLUSH [Concomitant]
  5. LORAZEPAM [Concomitant]
  6. LUCENTIS [Concomitant]
  7. NORVASC [Concomitant]
  8. PRILOSEC [Concomitant]
  9. PROCRIT [Concomitant]
  10. PROPOXYPHENE HCL [Concomitant]
  11. ROBITUSSIN [Concomitant]
  12. SALT + SODA MOUTH RINSE [Concomitant]
  13. SENOKOT [Concomitant]
  14. SIMVASTATIN [Concomitant]
  15. TEMAZEPAM [Concomitant]
  16. ZOFRAN [Concomitant]

REACTIONS (6)
  - DYSPNOEA [None]
  - FEBRILE NEUTROPENIA [None]
  - HERPES SIMPLEX [None]
  - PLATELET COUNT DECREASED [None]
  - PNEUMONIA [None]
  - WHITE BLOOD CELL COUNT DECREASED [None]
